FAERS Safety Report 20129803 (Version 1)
Quarter: 2021Q4

REPORT INFORMATION
  Report Type: Spontaneous
  Country: US (occurrence: None)
  Receive Date: 20211129
  Receipt Date: 20211129
  Transmission Date: 20220303
  Serious: Yes (Hospitalization)
  Sender: FDA-Public Use
  Company Number: None

PATIENT
  Age: 77 Year
  Sex: Male
  Weight: 87.54 kg

DRUGS (28)
  1. ABIRATERONE ACETATE [Suspect]
     Active Substance: ABIRATERONE ACETATE
     Indication: Prostate cancer
     Dosage: FREQUENCY : DAILY;?
     Route: 048
  2. ABIRATERONE [Concomitant]
     Active Substance: ABIRATERONE
  3. ACETAMINOPHENCODEINE [Concomitant]
  4. ALLOPURINOL [Concomitant]
  5. ATENOLOL [Concomitant]
  6. ATORVASTATIN [Concomitant]
     Active Substance: ATORVASTATIN
  7. BICALUTAMIDE [Concomitant]
     Active Substance: BICALUTAMIDE
  8. CANNABIDIOL [Concomitant]
  9. CHLORTHALIDONE [Concomitant]
     Active Substance: CHLORTHALIDONE
  10. CITALOPRAM [Concomitant]
     Active Substance: CITALOPRAM HYDROBROMIDE
  11. DONEPEZIL [Concomitant]
     Active Substance: DONEPEZIL
  12. EUTHYROX [Concomitant]
     Active Substance: LEVOTHYROXINE SODIUM
  13. FAMOTIDINE [Concomitant]
     Active Substance: FAMOTIDINE
  14. FENTANYL [Concomitant]
     Active Substance: FENTANYL
  15. FLUZONE [Concomitant]
     Active Substance: INFLUENZA A VIRUS A/CALIFORNIA/7/2009 X-179A (H1N1) ANTIGEN (FORMALDEHYDE INACTIVATED)\INFLUENZA A V
  16. GABAPENTIN [Concomitant]
     Active Substance: GABAPENTIN
  17. KETOROLAC [Concomitant]
     Active Substance: KETOROLAC TROMETHAMINE
  18. MECLIZINE [Concomitant]
     Active Substance: MECLIZINE HYDROCHLORIDE
  19. NARCAN [Concomitant]
     Active Substance: NALOXONE HYDROCHLORIDE
  20. NORCO [Concomitant]
     Active Substance: ACETAMINOPHEN\HYDROCODONE BITARTRATE
  21. OFLOXACIN [Concomitant]
     Active Substance: OFLOXACIN
  22. ORGOVYX [Concomitant]
     Active Substance: RELUGOLIX
  23. POTASSIUM [Concomitant]
  24. PREDNISONE [Concomitant]
     Active Substance: PREDNISONE
  25. PREVNAR [Concomitant]
     Active Substance: PNEUMOCOCCAL 7-VALENT CONJUGATE VACCINE (DIPHTHERIA CRM197 PROTEIN)
  26. PROMETHAZINE [Concomitant]
     Active Substance: PROMETHAZINE HYDROCHLORIDE
  27. RANITIDINE [Concomitant]
     Active Substance: RANITIDINE
  28. TOLTERODINE [Concomitant]
     Active Substance: TOLTERODINE

REACTIONS (4)
  - Fall [None]
  - Pyrexia [None]
  - Abdominal pain [None]
  - Limb discomfort [None]

NARRATIVE: CASE EVENT DATE: 20211128
